FAERS Safety Report 15743305 (Version 3)
Quarter: 2019Q2

REPORT INFORMATION
  Report Type: Spontaneous
  Country: US (occurrence: US)
  Receive Date: 20181220
  Receipt Date: 20190416
  Transmission Date: 20190711
  Serious: Yes (Hospitalization, Other)
  Sender: FDA-Public Use
  Company Number: US-HTU-2017US016825

PATIENT
  Age: 73 Year
  Sex: Male

DRUGS (1)
  1. VALCHLOR [Suspect]
     Active Substance: MECHLORETHAMINE
     Indication: CUTANEOUS T-CELL LYMPHOMA
     Dosage: THIN FILM , QD
     Route: 061
     Dates: start: 20140301

REACTIONS (7)
  - Gastroenteritis viral [Unknown]
  - Cardiac operation [Recovering/Resolving]
  - Memory impairment [Unknown]
  - Nausea [Unknown]
  - Hospitalisation [Not Recovered/Not Resolved]
  - Surgery [Unknown]
  - Therapy cessation [Unknown]

NARRATIVE: CASE EVENT DATE: 20170216
